FAERS Safety Report 18641723 (Version 1)
Quarter: 2020Q4

REPORT INFORMATION
  Report Type: Report from Study
  Country: IN (occurrence: IN)
  Receive Date: 20201221
  Receipt Date: 20201221
  Transmission Date: 20210114
  Serious: Yes (Death, Other)
  Sender: FDA-Public Use
  Company Number: PHHY2015IN154146

PATIENT
  Age: 41 Year
  Sex: Male

DRUGS (2)
  1. GLIVEC [Suspect]
     Active Substance: IMATINIB MESYLATE
     Dosage: 400 MG (1 X 400 MG TABLET)
     Route: 065
  2. GLIVEC [Suspect]
     Active Substance: IMATINIB MESYLATE
     Indication: CHRONIC MYELOID LEUKAEMIA
     Dosage: 600 MG
     Route: 065

REACTIONS (4)
  - Death [Fatal]
  - Therapy non-responder [Unknown]
  - Chronic myeloid leukaemia [Unknown]
  - Fibrosis [Unknown]

NARRATIVE: CASE EVENT DATE: 20200323
